FAERS Safety Report 7486208-X (Version None)
Quarter: 2011Q2

REPORT INFORMATION
  Report Type: 
  Country: None (occurrence: None)
  Receive Date: 20110517
  Receipt Date: 20110407
  Transmission Date: 20111010
  Serious: No
  Sender: FDA-Public Use
  Company Number: A0899034A

PATIENT
  Age: 78 Year
  Sex: Female

DRUGS (5)
  1. HYDRALAZINE HCL [Concomitant]
  2. ZOCOR [Concomitant]
  3. LEVOTHYROXINE SODIUM [Concomitant]
  4. VERAPAMIL [Concomitant]
  5. VOTRIENT [Suspect]
     Dosage: 800MG PER DAY
     Route: 048
     Dates: start: 20101009

REACTIONS (1)
  - PROTEINURIA [None]
